FAERS Safety Report 23027516 (Version 1)
Quarter: 2023Q4

REPORT INFORMATION
  Report Type: Other
  Country: None (occurrence: US)
  Receive Date: 20231004
  Receipt Date: 20231004
  Transmission Date: 20240110
  Serious: Yes (Hospitalization, Other)
  Sender: FDA-Public Use
  Company Number: US-B.Braun Medical Inc.-2146683

PATIENT
  Age: 66 Year
  Sex: Female

DRUGS (1)
  1. LIDOCAINE HYDROCHLORIDE [Suspect]
     Active Substance: LIDOCAINE HYDROCHLORIDE
     Indication: Analgesic therapy

REACTIONS (4)
  - Off label use [None]
  - Therapeutic product effect incomplete [None]
  - Nausea [None]
  - Chest pain [None]
